FAERS Safety Report 7728230-1 (Version None)
Quarter: 2011Q3

REPORT INFORMATION
  Report Type: 
  Country: None (occurrence: None)
  Receive Date: 20110905
  Receipt Date: 20110825
  Transmission Date: 20111222
  Serious: Yes (Hospitalization, Other)
  Sender: FDA-Public Use
  Company Number: PHHO2011FR14520

PATIENT
  Sex: Male
  Weight: 78 kg

DRUGS (6)
  1. METHOTREXATE [Suspect]
     Indication: ACUTE LYMPHOCYTIC LEUKAEMIA
     Dosage: UNK
     Dates: start: 20080601, end: 20080701
  2. IMATINIB MESYLATE [Suspect]
     Dosage: UNK
     Dates: end: 20080701
  3. IMATINIB MESYLATE [Suspect]
     Dosage: UNK
     Dates: start: 20080910
  4. IMATINIB MESYLATE [Suspect]
     Dosage: UNK
     Dates: start: 20080702, end: 20080909
  5. PURINETHOL [Suspect]
     Indication: ACUTE LYMPHOCYTIC LEUKAEMIA
     Dosage: UNK
     Dates: start: 20080601, end: 20080701
  6. IMATINIB MESYLATE [Suspect]
     Indication: ACUTE LYMPHOCYTIC LEUKAEMIA
     Dosage: UNK
     Route: 048
     Dates: start: 20080321, end: 20080524

REACTIONS (11)
  - FEBRILE BONE MARROW APLASIA [None]
  - CHOLESTASIS [None]
  - PNEUMONIA [None]
  - THROMBOCYTOPENIA [None]
  - ANAEMIA [None]
  - MUCOSAL INFLAMMATION [None]
  - LEUKOPENIA [None]
  - TOXICITY TO VARIOUS AGENTS [None]
  - RENAL FAILURE ACUTE [None]
  - PANCYTOPENIA [None]
  - HISTIOCYTOSIS HAEMATOPHAGIC [None]
